FAERS Safety Report 19138018 (Version 2)
Quarter: 2021Q2

REPORT INFORMATION
  Report Type: Report from Study
  Country: US (occurrence: US)
  Receive Date: 20210415
  Receipt Date: 20210521
  Transmission Date: 20210717
  Serious: Yes (Death, Hospitalization, Other)
  Sender: FDA-Public Use
  Company Number: US-ACADIA PHARMACEUTICALS INC.-ACA-2021-PIM-001284

PATIENT
  Sex: Male
  Weight: 63 kg

DRUGS (11)
  1. CARBIDOPA/LEVODOPA [Concomitant]
     Active Substance: CARBIDOPA\LEVODOPA
  2. MEMANTINE. [Concomitant]
     Active Substance: MEMANTINE
  3. ENTACAPONE. [Suspect]
     Active Substance: ENTACAPONE
  4. SIMVASTATIN. [Concomitant]
     Active Substance: SIMVASTATIN
  5. NUPLAZID [Suspect]
     Active Substance: PIMAVANSERIN TARTRATE
     Indication: PARKINSON^S DISEASE PSYCHOSIS
     Dosage: 34 MILLIGRAM, QD (AT NIGHT)
     Route: 048
     Dates: start: 20210218
  6. CITALOPRAM [Concomitant]
     Active Substance: CITALOPRAM HYDROBROMIDE
  7. NUPLAZID [Suspect]
     Active Substance: PIMAVANSERIN TARTRATE
     Indication: HALLUCINATION
     Dosage: 34 MILLIGRAM, QD (AT NIGHT)
     Route: 048
     Dates: end: 202103
  8. GALANTAMINE. [Concomitant]
     Active Substance: GALANTAMINE
  9. NUPLAZID [Suspect]
     Active Substance: PIMAVANSERIN TARTRATE
     Indication: DELUSION
  10. GABAPENTIN. [Concomitant]
     Active Substance: GABAPENTIN
  11. MYRBETRIQ [Concomitant]
     Active Substance: MIRABEGRON

REACTIONS (7)
  - Hallucination [Unknown]
  - Dehydration [Recovering/Resolving]
  - Weight decreased [Recovering/Resolving]
  - Confusional state [Recovering/Resolving]
  - Delusion [Recovering/Resolving]
  - Drug ineffective [Unknown]
  - Death [Fatal]
